FAERS Safety Report 24092368 (Version 1)
Quarter: 2024Q3

REPORT INFORMATION
  Report Type: Spontaneous
  Country: US (occurrence: US)
  Receive Date: 20240715
  Receipt Date: 20240715
  Transmission Date: 20241017
  Serious: Yes (Death, Other)
  Sender: AMGEN
  Company Number: US-AMGEN-USASP2024135668

PATIENT

DRUGS (2)
  1. PREDNISONE [Suspect]
     Active Substance: PREDNISONE
     Indication: Prostate cancer metastatic
     Dosage: 5 MILLIGRAM, BID
     Route: 065
  2. ABIRATERONE ACETATE [Suspect]
     Active Substance: ABIRATERONE ACETATE
     Indication: Prostate cancer metastatic
     Dosage: UNK
     Route: 065

REACTIONS (25)
  - Death [Fatal]
  - Hypokalaemia [Unknown]
  - Hyperglycaemia [Unknown]
  - Fatigue [Unknown]
  - Aspartate aminotransferase increased [Unknown]
  - Anaemia [Unknown]
  - Pain [Unknown]
  - Alanine aminotransferase increased [Unknown]
  - Blood alkaline phosphatase increased [Unknown]
  - Urinary tract infection [Unknown]
  - Fall [Unknown]
  - Dyspepsia [Unknown]
  - Pollakiuria [Unknown]
  - Constipation [Unknown]
  - Cough [Unknown]
  - Oedema peripheral [Unknown]
  - Decreased appetite [Unknown]
  - Pain in extremity [Unknown]
  - Hypomagnesaemia [Unknown]
  - Dyspnoea [Unknown]
  - Hot flush [Unknown]
  - Vomiting [Unknown]
  - Hypertension [Unknown]
  - Headache [Unknown]
  - Nausea [Unknown]
